FAERS Safety Report 17733352 (Version 1)
Quarter: 2020Q2

REPORT INFORMATION
  Report Type: Spontaneous
  Country: US (occurrence: US)
  Receive Date: 20200430
  Receipt Date: 20200430
  Transmission Date: 20200714
  Serious: Yes (Hospitalization)
  Sender: FDA-Public Use
  Company Number: None

PATIENT
  Age: 43 Year
  Sex: Male

DRUGS (4)
  1. KETOROLAC [Concomitant]
     Active Substance: KETOROLAC TROMETHAMINE
  2. METHYLPRED [Concomitant]
     Active Substance: METHYLPREDNISOLONE
  3. PREDNISONE. [Concomitant]
     Active Substance: PREDNISONE
  4. ACTEMRA [Suspect]
     Active Substance: TOCILIZUMAB
     Indication: RHEUMATOID ARTHRITIS
     Dosage: 1 SYR QWK SQ
     Route: 058
     Dates: start: 20200408

REACTIONS (11)
  - Quarantine [None]
  - Joint swelling [None]
  - Arthralgia [None]
  - Musculoskeletal pain [None]
  - Back pain [None]
  - Therapy interrupted [None]
  - Erythema [None]
  - Pain in extremity [None]
  - Hypoaesthesia [None]
  - Ill-defined disorder [None]
  - Infection [None]

NARRATIVE: CASE EVENT DATE: 20200323
